FAERS Safety Report 5842965-7 (Version None)
Quarter: 2008Q3

REPORT INFORMATION
  Report Type: 
  Country: None (occurrence: None)
  Receive Date: 20080811
  Receipt Date: 20080729
  Transmission Date: 20090109
  Serious: Yes (Hospitalization)
  Sender: FDA-Public Use
  Company Number: AZAUS200800246

PATIENT
  Age: 82 Year
  Sex: Female
  Weight: 74 kg

DRUGS (4)
  1. VIDAZA [Suspect]
     Indication: MYELODYSPLASTIC SYNDROME
     Dosage: (100 MG/M2, DAILY X 5 DAYS), INTRAVENOUS
     Route: 042
     Dates: start: 20071009, end: 20071013
  2. ZOCOR [Concomitant]
  3. TOPROL-XL [Concomitant]
  4. MULTIVITAMIN [Concomitant]

REACTIONS (5)
  - COLITIS [None]
  - DIZZINESS [None]
  - DYSPNOEA [None]
  - HAEMATOCHEZIA [None]
  - HAEMOGLOBIN DECREASED [None]
